FAERS Safety Report 7015917-1 (Version None)
Quarter: 2010Q3

REPORT INFORMATION
  Report Type: 
  Country: None (occurrence: None)
  Receive Date: 20100927
  Receipt Date: 20100120
  Transmission Date: 20110219
  Serious: No
  Sender: FDA-Public Use
  Company Number: US-ASTRAZENECA-2009UW18043

PATIENT
  Age: 83 Year
  Sex: Female

DRUGS (1)
  1. ARIMIDEX [Suspect]
     Route: 048
     Dates: start: 20090401

REACTIONS (6)
  - DIZZINESS [None]
  - EYE INFECTION [None]
  - FATIGUE [None]
  - PAIN [None]
  - TOOTH INFECTION [None]
  - VAGINAL INFECTION [None]
